FAERS Safety Report 20645597 (Version 2)
Quarter: 2022Q3

REPORT INFORMATION
  Report Type: Spontaneous
  Country: GB (occurrence: GB)
  Receive Date: 20220328
  Receipt Date: 20220819
  Transmission Date: 20221027
  Serious: Yes (Hospitalization)
  Sender: FDA-Public Use
  Company Number: GB-GRUNENTHAL-2022-102002

PATIENT
  Age: 42 Year
  Sex: Female

DRUGS (9)
  1. QUTENZA [Suspect]
     Active Substance: CAPSAICIN
     Indication: Intercostal neuralgia
     Dosage: UNK
     Route: 065
     Dates: start: 20211201, end: 20211201
  2. QUTENZA [Suspect]
     Active Substance: CAPSAICIN
     Dosage: UNK
     Route: 065
     Dates: start: 20220223, end: 20220223
  3. QUTENZA [Suspect]
     Active Substance: CAPSAICIN
     Dosage: UNK
     Route: 065
     Dates: start: 20220316, end: 20220316
  4. ASPIRIN [Concomitant]
     Active Substance: ASPIRIN
     Dosage: 150 MILLIGRAM, 1/DAY
     Route: 065
     Dates: start: 20211117
  5. PROCHLORPERAZINE [Concomitant]
     Active Substance: PROCHLORPERAZINE
     Indication: Vomiting
     Dosage: 5 MILLIGRAM, AS NEEDED
     Route: 065
     Dates: start: 20211108
  6. CYCLIZINE [Concomitant]
     Active Substance: CYCLIZINE
     Indication: Vomiting
     Dosage: 50 MILLIGRAM, AS NEEDED
     Route: 065
     Dates: start: 20211029
  7. ONDANSETRON [Concomitant]
     Active Substance: ONDANSETRON
     Indication: Vomiting
     Dosage: 4 MILLIGRAM, AS NEEDED
     Route: 065
     Dates: start: 20211130
  8. GABAPENTIN [Concomitant]
     Active Substance: GABAPENTIN
     Dosage: 900 MILLIGRAM, 1/DAY
     Route: 065
     Dates: start: 20220802
  9. TRANSAMIC ACID [Concomitant]
     Dosage: 1 GRAM, 3/DAY
     Route: 065
     Dates: start: 20220727

REACTIONS (5)
  - Hyperemesis gravidarum [Unknown]
  - Maternal exposure during pregnancy [Unknown]
  - Feeling hot [Unknown]
  - Discomfort [Unknown]
  - Inappropriate schedule of product administration [Unknown]
